FAERS Safety Report 18575680 (Version 2)
Quarter: 2020Q4

REPORT INFORMATION
  Report Type: Spontaneous
  Country: US (occurrence: US)
  Receive Date: 20201203
  Receipt Date: 20201204
  Transmission Date: 20210114
  Serious: No
  Sender: FDA-Public Use
  Company Number: US-PFIZER INC-2020476865

PATIENT
  Age: 54 Year
  Sex: Female
  Weight: 93.44 kg

DRUGS (10)
  1. TEMAZEPAM. [Concomitant]
     Active Substance: TEMAZEPAM
     Indication: INSOMNIA
     Dosage: 30 MG, 1X/DAY (15MG TABLET-2 TABLETS TAKEN NIGHTLY)
     Dates: start: 20201027
  2. BUPROPION HYDROCHLORIDE XL [Concomitant]
     Active Substance: BUPROPION HYDROCHLORIDE
     Dosage: 300 MG, 1X/DAY (300MG ONCE DAILY)
  3. AMBIEN [Concomitant]
     Active Substance: ZOLPIDEM TARTRATE
     Indication: INSOMNIA
     Dosage: UNK, 1X/DAY (12.5 ER TAKEN NIGHTLY)
     Dates: start: 2005, end: 2020
  4. XELJANZ XR [Suspect]
     Active Substance: TOFACITINIB CITRATE
     Indication: RHEUMATOID ARTHRITIS
     Dosage: 11 MG, 1X/DAY (ONCE DAILY BY MOUTH AFTER BREAKFAST)
     Route: 048
     Dates: start: 20201105
  5. AZOR [Concomitant]
     Active Substance: AMLODIPINE BESYLATE\OLMESARTAN MEDOXOMIL
     Indication: HYPERTENSION
     Dosage: UNK, 1X/DAY (10/40MG TAKEN ONCE DAILY)
  6. PREGABALIN. [Concomitant]
     Active Substance: PREGABALIN
     Dosage: 225 MG, 2X/DAY (225MG TWICE DAILY)
  7. CYCLOBENZAPRINE. [Concomitant]
     Active Substance: CYCLOBENZAPRINE
     Dosage: 10 MG, 1X/DAY (10MG ONCE DAILY AT BEDTIME)
  8. CYMBALTA [Concomitant]
     Active Substance: DULOXETINE HYDROCHLORIDE
     Indication: RHEUMATOID ARTHRITIS
     Dosage: 60 MG, DAILY
     Dates: end: 2020
  9. AMBIEN [Concomitant]
     Active Substance: ZOLPIDEM TARTRATE
     Indication: PAIN
  10. TEMAZEPAM. [Concomitant]
     Active Substance: TEMAZEPAM
     Indication: PAIN

REACTIONS (1)
  - Therapeutic product effect incomplete [Not Recovered/Not Resolved]
